FAERS Safety Report 5793952-9 (Version None)
Quarter: 2008Q2

REPORT INFORMATION
  Report Type: 
  Country: None (occurrence: None)
  Receive Date: 20080627
  Receipt Date: 20080619
  Transmission Date: 20081010
  Serious: Yes (Life-Threatening)
  Sender: FDA-Public Use
  Company Number: FR-GENENTECH-263385

PATIENT
  Sex: Female

DRUGS (5)
  1. RITUXIMAB [Suspect]
     Indication: POST TRANSPLANT LYMPHOPROLIFERATIVE DISORDER
     Dosage: 600 MG, UNKNOWN
     Route: 042
     Dates: start: 20080601
  2. CYCLOPHOSPHAMIDE [Suspect]
     Indication: POST TRANSPLANT LYMPHOPROLIFERATIVE DISORDER
     Dosage: 1200 MG, UNKNOWN
     Route: 042
     Dates: start: 20080601
  3. ADRIAMYCIN PFS [Suspect]
     Indication: POST TRANSPLANT LYMPHOPROLIFERATIVE DISORDER
     Dosage: 80 MG, UNKNOWN
     Route: 065
     Dates: start: 20080601
  4. VINCRISTINE [Suspect]
     Indication: POST TRANSPLANT LYMPHOPROLIFERATIVE DISORDER
     Dosage: 2 MG, UNKNOWN
     Route: 065
     Dates: start: 20080601
  5. CORTANCYL [Concomitant]
     Indication: DRUG USE FOR UNKNOWN INDICATION
     Dates: start: 20080601, end: 20080605

REACTIONS (1)
  - DUODENAL PERFORATION [None]
